FAERS Safety Report 6517692-3 (Version None)
Quarter: 2009Q4

REPORT INFORMATION
  Report Type: 
  Country: None (occurrence: None)
  Receive Date: 20091224
  Receipt Date: 20091217
  Transmission Date: 20100525
  Serious: Yes (Hospitalization)
  Sender: FDA-Public Use
  Company Number: JP-ASTRAZENECA-2009SE32885

PATIENT
  Age: 49 Year
  Sex: Male

DRUGS (4)
  1. CRESTOR [Suspect]
     Indication: HYPERCHOLESTEROLAEMIA
     Route: 048
     Dates: start: 20090601, end: 20091216
  2. VESTURIT [Suspect]
     Indication: HYPERTRIGLYCERIDAEMIA
     Dosage: 2 TABLETS PER DAY
     Route: 048
  3. PL [Concomitant]
     Indication: NASOPHARYNGITIS
     Dosage: DOSE UNKNOWN
     Route: 048
  4. MEPTIN [Concomitant]
     Indication: NASOPHARYNGITIS
     Dosage: DOSE UNKNOWN
     Route: 065

REACTIONS (2)
  - BLOOD CREATINE PHOSPHOKINASE INCREASED [None]
  - HYPOAESTHESIA [None]
